FAERS Safety Report 6032479-6 (Version None)
Quarter: 2008Q4

REPORT INFORMATION
  Report Type: 
  Country: None (occurrence: None)
  Receive Date: 20081224
  Receipt Date: 20080924
  Transmission Date: 20090506
  Serious: No
  Sender: FDA-Public Use
  Company Number: 2008PV036771

PATIENT
  Age: 60 Year
  Sex: Female

DRUGS (4)
  1. SYMLIN (PRAMLINTIDE ACETATE) INJECTION (0.6 MG/M) [Suspect]
     Indication: TYPE 2 DIABETES MELLITUS
     Dosage: ;BID;SC;BID;SC
     Route: 058
     Dates: start: 20080301, end: 20080401
  2. SYMLIN (PRAMLINTIDE ACETATE) INJECTION (0.6 MG/M) [Suspect]
     Indication: TYPE 2 DIABETES MELLITUS
     Dosage: ;BID;SC;BID;SC
     Route: 058
     Dates: start: 20080401, end: 20080501
  3. HUMALOG N [Concomitant]
  4. NOVOLOG MIX 70/30 [Concomitant]

REACTIONS (1)
  - WEIGHT INCREASED [None]
